FAERS Safety Report 13938599 (Version 1)
Quarter: 2017Q3

REPORT INFORMATION
  Report Type: Spontaneous
  Country: US (occurrence: US)
  Receive Date: 20170905
  Receipt Date: 20170905
  Transmission Date: 20171127
  Serious: Yes (Life-Threatening, Other)
  Sender: FDA-Public Use
  Company Number: None

PATIENT
  Age: 23 Year
  Sex: Female
  Weight: 78.75 kg

DRUGS (8)
  1. ZOLOFT [Concomitant]
     Active Substance: SERTRALINE HYDROCHLORIDE
  2. VITAMIN C [Concomitant]
     Active Substance: ASCORBIC ACID
  3. IBUPROFEN. [Concomitant]
     Active Substance: IBUPROFEN
  4. KLONOPIN [Concomitant]
     Active Substance: CLONAZEPAM
  5. SEROQUEL [Concomitant]
     Active Substance: QUETIAPINE FUMARATE
  6. PAMPRIN [Concomitant]
     Active Substance: IBUPROFEN
  7. CLAMIPROMINE [Concomitant]
  8. LAMICTAL [Suspect]
     Active Substance: LAMOTRIGINE
     Indication: BIPOLAR II DISORDER
     Dosage: ?          QUANTITY:1 TABLET(S);?
     Route: 048

REACTIONS (5)
  - Thinking abnormal [None]
  - Drug dose omission [None]
  - Mental disorder [None]
  - Suicidal ideation [None]
  - Withdrawal syndrome [None]

NARRATIVE: CASE EVENT DATE: 20170905
